FAERS Safety Report 14032969 (Version 3)
Quarter: 2017Q4

REPORT INFORMATION
  Report Type: Spontaneous
  Country: US (occurrence: US)
  Receive Date: 20171003
  Receipt Date: 20171207
  Transmission Date: 20180321
  Serious: Yes (Hospitalization)
  Sender: FDA-Public Use
  Company Number: US-JNJFOC-20170931115

PATIENT
  Age: 64 Year
  Sex: Male

DRUGS (1)
  1. XARELTO [Suspect]
     Active Substance: RIVAROXABAN
     Indication: PULMONARY EMBOLISM
     Dosage: 15 AND 20 MG
     Route: 048
     Dates: start: 20140908, end: 20140930

REACTIONS (4)
  - Haemorrhage [Unknown]
  - Haematuria [Unknown]
  - Deep vein thrombosis [Unknown]
  - Pleurectomy [Unknown]

NARRATIVE: CASE EVENT DATE: 20140930
